FAERS Safety Report 7359670-0 (Version None)
Quarter: 2011Q1

REPORT INFORMATION
  Report Type: 
  Country: None (occurrence: None)
  Receive Date: 20110317
  Receipt Date: 20100428
  Transmission Date: 20110831
  Serious: No
  Sender: FDA-Public Use
  Company Number: US-PFIZER INC-2010054212

PATIENT
  Sex: Female

DRUGS (5)
  1. NORVASC [Suspect]
     Route: 065
  2. LISINOPRIL [Suspect]
     Route: 065
  3. MAXZIDE [Suspect]
     Route: 065
  4. PLAVIX [Suspect]
     Route: 065
  5. PEPCID [Suspect]
     Route: 065

REACTIONS (1)
  - DIARRHOEA [None]
